FAERS Safety Report 16100727 (Version 12)
Quarter: 2020Q4

REPORT INFORMATION
  Report Type: Spontaneous
  Country: CA (occurrence: CA)
  Receive Date: 20190321
  Receipt Date: 20201204
  Transmission Date: 20210113
  Serious: Yes (Other)
  Sender: FDA-Public Use
  Company Number: CA-PFIZER INC-2019119968

PATIENT
  Age: 57 Year
  Sex: Female

DRUGS (9)
  1. XELJANZ [Suspect]
     Active Substance: TOFACITINIB CITRATE
     Indication: COLITIS ULCERATIVE
     Dosage: 10 MG, 2X/DAY (BID)
     Route: 048
     Dates: start: 20190314, end: 2019
  2. XELJANZ [Suspect]
     Active Substance: TOFACITINIB CITRATE
     Dosage: 5 MG, 2X/DAY
     Route: 048
     Dates: start: 20190610
  3. XELJANZ [Suspect]
     Active Substance: TOFACITINIB CITRATE
     Dosage: 10 MG, 2X/DAY
     Route: 048
     Dates: start: 202011
  4. XELJANZ [Suspect]
     Active Substance: TOFACITINIB CITRATE
     Dosage: 10 MG, 2X/DAY (BID)
     Route: 048
     Dates: start: 2019, end: 20190603
  5. XELJANZ [Suspect]
     Active Substance: TOFACITINIB CITRATE
     Dosage: 10 MG, 1X/DAY
     Route: 048
     Dates: start: 20200717, end: 20200717
  6. LAX A DAY PHARMA [Concomitant]
     Dosage: UNK
  7. XELJANZ [Suspect]
     Active Substance: TOFACITINIB CITRATE
     Dosage: 5 MG, 2X/DAY
     Route: 048
     Dates: start: 20200718, end: 202011
  8. PANTOLOC [Concomitant]
     Active Substance: PANTOPRAZOLE SODIUM
     Indication: NAUSEA
     Dosage: UNK
  9. ATORVASTATIN [Concomitant]
     Active Substance: ATORVASTATIN
     Dosage: 10 MG, UNK

REACTIONS (26)
  - Weight decreased [Unknown]
  - Nasopharyngitis [Unknown]
  - Abdominal discomfort [Unknown]
  - Angina pectoris [Recovered/Resolved]
  - Abdominal pain upper [Recovered/Resolved]
  - Nausea [Recovering/Resolving]
  - Aphonia [Recovering/Resolving]
  - Cough [Recovering/Resolving]
  - Flank pain [Not Recovered/Not Resolved]
  - Malaise [Unknown]
  - Diarrhoea [Recovered/Resolved]
  - Gastrointestinal disorder [Unknown]
  - Constipation [Not Recovered/Not Resolved]
  - Viral infection [Recovering/Resolving]
  - Flatulence [Unknown]
  - Diarrhoea haemorrhagic [Recovered/Resolved]
  - Product dose omission issue [Unknown]
  - Accidental overdose [Unknown]
  - Decreased appetite [Unknown]
  - Abdominal pain lower [Unknown]
  - Urinary tract infection [Recovering/Resolving]
  - Abdominal pain [Recovered/Resolved]
  - Haematochezia [Recovered/Resolved]
  - Off label use [Unknown]
  - Abnormal faeces [Unknown]
  - Abdominal distension [Recovering/Resolving]

NARRATIVE: CASE EVENT DATE: 201903
